FAERS Safety Report 23848833 (Version 1)
Quarter: 2024Q2

REPORT INFORMATION
  Report Type: Spontaneous
  Country: US (occurrence: None)
  Receive Date: 20240510
  Receipt Date: 20240510
  Transmission Date: 20240716
  Serious: Yes (Death)
  Sender: FDA-Public Use
  Company Number: None

PATIENT
  Sex: Male
  Weight: 71.5 kg

DRUGS (1)
  1. TECLISTAMAB [Suspect]
     Active Substance: TECLISTAMAB
     Dates: start: 20231216, end: 20231219

REACTIONS (10)
  - Immune effector cell-associated neurotoxicity syndrome [None]
  - Cytokine release syndrome [None]
  - Multiple organ dysfunction syndrome [None]
  - Metabolic acidosis [None]
  - Candida infection [None]
  - Cardiac infection [None]
  - Gastric infection [None]
  - Pneumonia [None]
  - Shock [None]
  - Encephalopathy [None]

NARRATIVE: CASE EVENT DATE: 20231220
